FAERS Safety Report 6060234-X (Version None)
Quarter: 2009Q1

REPORT INFORMATION
  Report Type: 
  Country: None (occurrence: None)
  Receive Date: 20090129
  Receipt Date: 20090116
  Transmission Date: 20090719
  Serious: Yes (Hospitalization)
  Sender: FDA-Public Use
  Company Number: 2009000186

PATIENT
  Age: 67 Year
  Sex: Female

DRUGS (10)
  1. ERLOTINIB (ERLOTINIB) (TABLET) (ERLOTINIB) [Suspect]
     Indication: NON-SMALL CELL LUNG CANCER
     Dosage: 150 MG, QD, ORAL
     Route: 048
     Dates: start: 20081120, end: 20081215
  2. BLINDED SUNITINIB [Suspect]
  3. REPAGLINIDE [Concomitant]
  4. NEBIVOLOL HCL [Concomitant]
  5. TIOTROPIUM [Concomitant]
  6. ENOXAPARIN SODIUM [Concomitant]
  7. SERETIDE (SERETIDE) [Concomitant]
  8. ALLOPURINOL [Concomitant]
  9. SIMVASTATIN [Concomitant]
  10. CO-INHIBACE [Concomitant]

REACTIONS (9)
  - ANOREXIA [None]
  - DIARRHOEA [None]
  - DIZZINESS [None]
  - GENERAL PHYSICAL HEALTH DETERIORATION [None]
  - NAUSEA [None]
  - ORAL FUNGAL INFECTION [None]
  - RENAL FAILURE ACUTE [None]
  - VOMITING [None]
  - WEIGHT DECREASED [None]
